FAERS Safety Report 20950716 (Version 2)
Quarter: 2022Q3

REPORT INFORMATION
  Report Type: Spontaneous
  Country: US (occurrence: US)
  Receive Date: 20220613
  Receipt Date: 20220707
  Transmission Date: 20221027
  Serious: No
  Sender: FDA-Public Use
  Company Number: US-PFIZER INC-202200809758

PATIENT
  Age: 83 Year
  Sex: Female

DRUGS (1)
  1. TOVIAZ [Suspect]
     Active Substance: FESOTERODINE FUMARATE
     Dosage: UNK

REACTIONS (4)
  - Flatulence [Recovered/Resolved]
  - Eructation [Unknown]
  - Flushing [Recovered/Resolved]
  - Fatigue [Recovered/Resolved]
